FAERS Safety Report 24152592 (Version 2)
Quarter: 2024Q3

REPORT INFORMATION
  Report Type: Report from Study
  Country: US (occurrence: US)
  Receive Date: 20240730
  Receipt Date: 20240803
  Transmission Date: 20241016
  Serious: Yes (Hospitalization, Other)
  Sender: ABBVIE
  Company Number: US-ABBVIE-5856618

PATIENT
  Age: 55 Year
  Sex: Female

DRUGS (1)
  1. RINVOQ [Suspect]
     Active Substance: UPADACITINIB
     Indication: Product used for unknown indication
     Route: 048
     Dates: start: 20240720

REACTIONS (4)
  - Pulmonary oedema [Recovering/Resolving]
  - Subdiaphragmatic abscess [Unknown]
  - Back pain [Unknown]
  - Escherichia test positive [Unknown]

NARRATIVE: CASE EVENT DATE: 20240701
